APPROVED DRUG PRODUCT: CAFFEINE CITRATE
Active Ingredient: CAFFEINE CITRATE
Strength: EQ 30MG BASE/3ML (EQ 10MG BASE/ML)
Dosage Form/Route: SOLUTION;ORAL
Application: A077304 | Product #001 | TE Code: AA
Applicant: EXELA PHARMA SCIENCES LLC
Approved: Sep 21, 2006 | RLD: No | RS: Yes | Type: RX